FAERS Safety Report 19633331 (Version 1)
Quarter: 2021Q3

REPORT INFORMATION
  Report Type: Spontaneous
  Country: US (occurrence: US)
  Receive Date: 20210729
  Receipt Date: 20210729
  Transmission Date: 20211014
  Serious: No
  Sender: FDA-Public Use
  Company Number: US-PERRIGO-20US009406

PATIENT
  Sex: Female

DRUGS (1)
  1. MINOXIDIL. [Suspect]
     Active Substance: MINOXIDIL
     Indication: PRODUCT USED FOR UNKNOWN INDICATION
     Dosage: UNKNOWN, 4 TIMES WEEKLY
     Route: 061

REACTIONS (3)
  - Product administered at inappropriate site [Recovered/Resolved]
  - Application site pruritus [Unknown]
  - Off label use [Recovered/Resolved]
